FAERS Safety Report 5223304-1 (Version None)
Quarter: 2007Q1

REPORT INFORMATION
  Report Type: 
  Country: None (occurrence: None)
  Receive Date: 20070124
  Receipt Date: 20070109
  Transmission Date: 20070707
  Serious: Yes (Hospitalization, Other)
  Sender: FDA-Public Use
  Company Number: 2007SP000409

PATIENT
  Age: 44 Year
  Sex: Male
  Weight: 61 kg

DRUGS (6)
  1. DESLORATADINE [Suspect]
     Indication: RHINITIS
     Dosage: 5 MG; QD; PO
     Route: 048
     Dates: start: 20061117, end: 20061123
  2. DEPAKENE [Suspect]
     Indication: DRUG USE FOR UNKNOWN INDICATION
     Dosage: 500 MG; TID; PO
     Route: 048
  3. TEGRETOL [Suspect]
     Indication: DRUG USE FOR UNKNOWN INDICATION
     Dosage: 400 MG; TID; PO
     Route: 048
  4. URBANYL (CLOBAZAM) [Suspect]
     Indication: DRUG USE FOR UNKNOWN INDICATION
     Dosage: 5 MG; QD; PO
     Route: 048
  5. KENZEN (CANDESARTAN CILEXETIL) [Suspect]
     Indication: DRUG USE FOR UNKNOWN INDICATION
     Dosage: 4 MG; QD; PO
     Route: 048
  6. SINGULAIR [Suspect]
     Indication: DRUG USE FOR UNKNOWN INDICATION
     Dosage: 10 MG; QD; PO
     Route: 048

REACTIONS (14)
  - ALANINE AMINOTRANSFERASE INCREASED [None]
  - ASPARTATE AMINOTRANSFERASE INCREASED [None]
  - BRADYCARDIA [None]
  - CHOLINERGIC SYNDROME [None]
  - GAMMA-GLUTAMYLTRANSFERASE INCREASED [None]
  - HEADACHE [None]
  - HYPERHIDROSIS [None]
  - HYPOTHERMIA [None]
  - MIOSIS [None]
  - OCCUPATIONAL EXPOSURE TO TOXIC AGENT [None]
  - PHOTOPHOBIA [None]
  - SALIVARY HYPERSECRETION [None]
  - VERTIGO [None]
  - VOMITING [None]
